FAERS Safety Report 7694456-9 (Version None)
Quarter: 2011Q3

REPORT INFORMATION
  Report Type: 
  Country: None (occurrence: None)
  Receive Date: 20110819
  Receipt Date: 20110805
  Transmission Date: 20111222
  Serious: Yes (Hospitalization)
  Sender: FDA-Public Use
  Company Number: PHHY2011US63630

PATIENT
  Sex: Female

DRUGS (3)
  1. TASIGNA [Suspect]
     Dosage: 300 MG, BID
     Route: 048
     Dates: start: 20110603
  2. TASIGNA [Suspect]
     Indication: CHRONIC MYELOID LEUKAEMIA
     Dosage: 300 MG, BID
     Route: 048
     Dates: start: 20110218, end: 20110517
  3. VICODIN [Concomitant]

REACTIONS (3)
  - CHOLECYSTITIS [None]
  - ABDOMINAL PAIN [None]
  - CHOLELITHIASIS [None]
